FAERS Safety Report 14488081 (Version 1)
Quarter: 2018Q1

REPORT INFORMATION
  Report Type: Spontaneous
  Country: US (occurrence: US)
  Receive Date: 20180205
  Receipt Date: 20180205
  Transmission Date: 20180509
  Serious: No
  Sender: FDA-Public Use
  Company Number: US-SHIRE-US201803615

PATIENT
  Age: 33 Year
  Sex: Female
  Weight: 58.96 kg

DRUGS (1)
  1. CUVITRU [Suspect]
     Active Substance: HUMAN IMMUNOGLOBULIN G
     Indication: PRODUCT USED FOR UNKNOWN INDICATION
     Dosage: 25 G, 1X/WEEK
     Route: 058
     Dates: start: 20180125

REACTIONS (5)
  - Headache [Recovered/Resolved]
  - Urticaria [Unknown]
  - Pain [Recovering/Resolving]
  - Chills [Recovered/Resolved]
  - Swelling [Recovering/Resolving]

NARRATIVE: CASE EVENT DATE: 20180125
